FAERS Safety Report 4447982-X (Version None)
Quarter: 2004Q3

REPORT INFORMATION
  Report Type: 
  Country: None (occurrence: None)
  Receive Date: 20040813
  Receipt Date: 20040102
  Transmission Date: 20050211
  Serious: Yes (Other)
  Sender: FDA-Public Use
  Company Number: PHEH2003US10072

PATIENT
  Age: 82 Year
  Sex: Male

DRUGS (12)
  1. VISUDYNE [Suspect]
     Indication: MACULAR DEGENERATION
     Dosage: 2 MG/ML ONCE IV
     Route: 042
     Dates: start: 20031029, end: 20031029
  2. CELEBREX [Concomitant]
  3. PREVACID [Concomitant]
  4. LISINOPRIL [Concomitant]
  5. ISOSORBIDE [Concomitant]
  6. PRAVACHOL [Concomitant]
  7. VALIUM [Concomitant]
  8. NORVASC [Concomitant]
  9. PROPRANOLOL [Concomitant]
  10. ASPIRIN [Concomitant]
  11. ARICEPT [Concomitant]
  12. NITROGLYCERIN [Concomitant]

REACTIONS (8)
  - BLOOD GLUCOSE [None]
  - BLOOD PRESSURE DECREASED [None]
  - COLD SWEAT [None]
  - DEPRESSED LEVEL OF CONSCIOUSNESS [None]
  - HEART RATE DECREASED [None]
  - HYPERHIDROSIS [None]
  - PALLOR [None]
  - SYNCOPE VASOVAGAL [None]
